FAERS Safety Report 11444481 (Version 1)
Quarter: 2015Q3

REPORT INFORMATION
  Report Type: Spontaneous
  Country: JP (occurrence: JP)
  Receive Date: 20150902
  Receipt Date: 20150902
  Transmission Date: 20151125
  Serious: Yes (Other)
  Sender: FDA-Public Use
  Company Number: JP-009507513-1507JPN013943

PATIENT
  Age: 60 Year
  Sex: Male

DRUGS (1)
  1. PROPECIA [Suspect]
     Active Substance: FINASTERIDE
     Dosage: 1 MG, FREQUENCY: 1 PER
     Route: 048
     Dates: start: 200608

REACTIONS (6)
  - Depressive symptom [Unknown]
  - Testicular atrophy [Unknown]
  - Malaise [Unknown]
  - Fatigue [Unknown]
  - Testicular pain [Unknown]
  - Erectile dysfunction [Unknown]

NARRATIVE: CASE EVENT DATE: 2008
